FAERS Safety Report 8493293-5 (Version None)
Quarter: 2012Q3

REPORT INFORMATION
  Report Type: 
  Country: None (occurrence: None)
  Receive Date: 20120706
  Receipt Date: 20120110
  Transmission Date: 20120928
  Serious: Yes (Other)
  Sender: FDA-Public Use
  Company Number: SE-ROCHE-1028790

PATIENT
  Sex: Female

DRUGS (2)
  1. PREDNISOLONE [Concomitant]
  2. MABTHERA [Suspect]
     Indication: RHEUMATOID ARTHRITIS
     Dates: end: 20110609

REACTIONS (1)
  - HEPATOTOXICITY [None]
